FAERS Safety Report 10414671 (Version 2)
Quarter: 2015Q2

REPORT INFORMATION
  Report Type: Spontaneous
  Country: GB (occurrence: GB)
  Receive Date: 20140828
  Receipt Date: 20150624
  Transmission Date: 20150821
  Serious: Yes (Hospitalization, Other)
  Sender: FDA-Public Use
  Company Number: GB-009507513-1408GBR015350

PATIENT
  Sex: Male

DRUGS (1)
  1. NOXAFIL [Suspect]
     Active Substance: POSACONAZOLE
     Dosage: DAILY DOSE UNKNOWN
     Route: 048
     Dates: start: 201204

REACTIONS (2)
  - Cerebrovascular accident [Unknown]
  - Leg amputation [Unknown]

NARRATIVE: CASE EVENT DATE: 2014
